FAERS Safety Report 7001201-9 (Version None)
Quarter: 2010Q3

REPORT INFORMATION
  Report Type: 
  Country: None (occurrence: None)
  Receive Date: 20100920
  Receipt Date: 20100701
  Transmission Date: 20110219
  Serious: No
  Sender: FDA-Public Use
  Company Number: US-ASTRAZENECA-2007UW21669

PATIENT
  Age: 17768 Day
  Sex: Male
  Weight: 104.8 kg

DRUGS (22)
  1. SEROQUEL [Suspect]
     Indication: BIPOLAR DISORDER
     Dosage: 100-600 MG
     Route: 048
     Dates: start: 20020201
  2. SEROQUEL [Suspect]
     Indication: DEPRESSION
     Dosage: 100-600 MG
     Route: 048
     Dates: start: 20020201
  3. SEROQUEL [Suspect]
     Dosage: 100 MG TO 600 MG
     Route: 048
     Dates: start: 20021126, end: 20100301
  4. SEROQUEL [Suspect]
     Dosage: 100 MG TO 600 MG
     Route: 048
     Dates: start: 20021126, end: 20100301
  5. ZIAC [Concomitant]
  6. CELEBREX [Concomitant]
  7. LORAZEPAM [Concomitant]
  8. LISINOPRIL [Concomitant]
  9. NAPROXEN [Concomitant]
  10. METFORMIN [Concomitant]
  11. NASONEX [Concomitant]
  12. CLONAZEPAM [Concomitant]
  13. METHYLPRED [Concomitant]
  14. PREDNISONE [Concomitant]
  15. AMBIEN [Concomitant]
  16. DIAZEPAM [Concomitant]
  17. PROPO-N/APAP [Concomitant]
  18. OXYCODONE HCL AND ACETAMINOPHEN [Concomitant]
  19. ACETAMINOPHEN AND HYDROCODONE BITARTRATE [Concomitant]
  20. ALLFEN C [Concomitant]
  21. ASPIRIN [Concomitant]
  22. ABILIFY [Concomitant]
     Dates: start: 20100301

REACTIONS (17)
  - ADVERSE DRUG REACTION [None]
  - ANXIETY [None]
  - APATHY [None]
  - BACK PAIN [None]
  - DRY MOUTH [None]
  - ESSENTIAL HYPERTENSION [None]
  - EYE SWELLING [None]
  - INSOMNIA [None]
  - IRRITABILITY [None]
  - LETHARGY [None]
  - MELANOCYTIC NAEVUS [None]
  - MULTIPLE ALLERGIES [None]
  - NASAL CONGESTION [None]
  - NEGATIVE THOUGHTS [None]
  - OBSESSIVE THOUGHTS [None]
  - SEDATION [None]
  - TYPE 2 DIABETES MELLITUS [None]
